FAERS Safety Report 24465281 (Version 1)
Quarter: 2024Q4

REPORT INFORMATION
  Report Type: Report from Study
  Country: US (occurrence: US)
  Receive Date: 20241018
  Receipt Date: 20241018
  Transmission Date: 20250115
  Serious: No
  Sender: ROCHE
  Company Number: US-ROCHE-3528532

PATIENT

DRUGS (2)
  1. XOLAIR [Suspect]
     Active Substance: OMALIZUMAB
     Indication: Mast cell activation syndrome
     Route: 065
     Dates: start: 202202
  2. XOLAIR [Suspect]
     Active Substance: OMALIZUMAB
     Indication: Asthma

REACTIONS (9)
  - Malaise [Unknown]
  - Drug ineffective [Unknown]
  - Tachycardia [Unknown]
  - Flushing [Unknown]
  - Mast cell activation syndrome [Unknown]
  - Chest pain [Unknown]
  - Muscle spasms [Unknown]
  - Anxiety [Unknown]
  - Chest discomfort [Unknown]
